FAERS Safety Report 14003099 (Version 1)
Quarter: 2017Q3

REPORT INFORMATION
  Report Type: Spontaneous
  Country: FR (occurrence: FR)
  Receive Date: 20170922
  Receipt Date: 20170922
  Transmission Date: 20171128
  Serious: Yes (Other)
  Sender: FDA-Public Use
  Company Number: FR-MERCK KGAA-2027441

PATIENT
  Age: 39 Year
  Sex: Female
  Weight: 66 kg

DRUGS (1)
  1. NOVOTHYROX [Suspect]
     Active Substance: LEVOTHYROXINE SODIUM
     Indication: POST PROCEDURAL HYPOTHYROIDISM
     Route: 048
     Dates: start: 20170701

REACTIONS (6)
  - Muscular weakness [Unknown]
  - Tachycardia [Unknown]
  - Crying [Unknown]
  - Abdominal distension [Unknown]
  - Diarrhoea [Unknown]
  - Fatigue [Unknown]
